FAERS Safety Report 22010742 (Version 1)
Quarter: 2023Q1

REPORT INFORMATION
  Report Type: Spontaneous
  Country: TW (occurrence: TW)
  Receive Date: 20230220
  Receipt Date: 20230220
  Transmission Date: 20230417
  Serious: Yes (Other)
  Sender: FDA-Public Use
  Company Number: TW-BAYER-2023A018281

PATIENT
  Age: 44 Year
  Sex: Male

DRUGS (1)
  1. EYLEA [Suspect]
     Active Substance: AFLIBERCEPT
     Indication: Diabetic retinal oedema
     Dosage: 0.05 ML, ONCE, (RECIEVED A TOTAL OF 4 INJECTION, ONCE A MONTH), SOL FOR INJ, 40MG/ML
     Route: 031

REACTIONS (1)
  - Vitreous haemorrhage [Unknown]
